FAERS Safety Report 7728339-2 (Version None)
Quarter: 2011Q3

REPORT INFORMATION
  Report Type: 
  Country: None (occurrence: None)
  Receive Date: 20110905
  Receipt Date: 20110831
  Transmission Date: 20111222
  Serious: Yes (Death)
  Sender: FDA-Public Use
  Company Number: PHHY2011NL16724

PATIENT
  Sex: Male

DRUGS (4)
  1. ESTRACYT [Concomitant]
  2. ATENOLOL [Concomitant]
  3. ZOMETA [Suspect]
     Indication: METASTASES TO BONE
     Dosage: 4 MG/5ML EVERY 4 WEEKS
  4. ACETYLSALICYLIC ACID SRT [Concomitant]

REACTIONS (2)
  - NEOPLASM MALIGNANT [None]
  - NEOPLASM PROGRESSION [None]
